FAERS Safety Report 17837577 (Version 1)
Quarter: 2020Q2

REPORT INFORMATION
  Report Type: Spontaneous
  Country: US (occurrence: US)
  Receive Date: 20200529
  Receipt Date: 20200529
  Transmission Date: 20200714
  Serious: Yes (Death, Other)
  Sender: FDA-Public Use
  Company Number: US-009507513-2005USA008799

PATIENT
  Age: 81 Year
  Sex: Male

DRUGS (3)
  1. BCG VACCINE USP [Suspect]
     Active Substance: BCG VACCINE
  2. SODIUM CHLORIDE. [Suspect]
     Active Substance: SODIUM CHLORIDE
  3. INTRON A [Suspect]
     Active Substance: INTERFERON ALFA-2B
     Dosage: 50 MILLION UNITS, ONCE PER MONTH
     Route: 043

REACTIONS (1)
  - Death [Fatal]

NARRATIVE: CASE EVENT DATE: 20200519
